FAERS Safety Report 15934902 (Version 2)
Quarter: 2019Q1

REPORT INFORMATION
  Report Type: Spontaneous
  Country: US (occurrence: US)
  Receive Date: 20190207
  Receipt Date: 20190220
  Transmission Date: 20190417
  Serious: No
  Sender: FDA-Public Use
  Company Number: US-JNJFOC-20190122220

PATIENT
  Sex: Male

DRUGS (3)
  1. TYLENOL [Suspect]
     Active Substance: ACETAMINOPHEN
     Route: 065
  2. TYLENOL [Suspect]
     Active Substance: ACETAMINOPHEN
     Indication: HEADACHE
     Route: 065
  3. SOLIRIS [Concomitant]
     Active Substance: ECULIZUMAB
     Indication: END STAGE RENAL DISEASE
     Dosage: HAS BEEN GIVEN FOR TEN WEEKS
     Route: 065

REACTIONS (1)
  - Drug effect incomplete [Unknown]
